FAERS Safety Report 5949938-4 (Version None)
Quarter: 2008Q4

REPORT INFORMATION
  Report Type: 
  Country: None (occurrence: None)
  Receive Date: 20081112
  Receipt Date: 20081030
  Transmission Date: 20090506
  Serious: Yes (Death)
  Sender: FDA-Public Use
  Company Number: US-ELI_LILLY_AND_COMPANY-US200810002885

PATIENT
  Age: 30 Year
  Sex: Male

DRUGS (7)
  1. ZYPREXA [Suspect]
     Indication: DRUG DEPENDENCE
     Dosage: 1 D/F, EACH EVENING
     Dates: start: 20080916
  2. ZYPREXA [Suspect]
     Dosage: 5 MG, EACH EVENING
  3. ALLOPURINOL [Concomitant]
     Dosage: 100 MG, UNK
  4. PIROXICAM [Concomitant]
  5. ANTABUSE [Concomitant]
     Dosage: 250 MG, UNK
  6. FLUOXETINE [Concomitant]
     Dosage: 20 MG, UNK
  7. SEROQUEL [Concomitant]

REACTIONS (1)
  - COMPLETED SUICIDE [None]
